FAERS Safety Report 25106929 (Version 1)
Quarter: 2025Q1

REPORT INFORMATION
  Report Type: Spontaneous
  Country: PT (occurrence: PT)
  Receive Date: 20250321
  Receipt Date: 20250321
  Transmission Date: 20250408
  Serious: Yes (Death)
  Sender: CSL BEHRING
  Company Number: PT-BEH-2025199428

PATIENT
  Sex: Female

DRUGS (3)
  1. VELTASSA [Suspect]
     Active Substance: PATIROMER
     Indication: Hyperkalaemia
     Route: 065
     Dates: start: 20210630
  2. VELTASSA [Suspect]
     Active Substance: PATIROMER
     Route: 065
     Dates: start: 20210928
  3. VELTASSA [Suspect]
     Active Substance: PATIROMER
     Route: 065
     Dates: start: 20220114

REACTIONS (2)
  - Death [Fatal]
  - Hypercalcaemia [Unknown]

NARRATIVE: CASE EVENT DATE: 20240612
